FAERS Safety Report 23290059 (Version 4)
Quarter: 2025Q2

REPORT INFORMATION
  Report Type: Report from Study
  Country: BR (occurrence: BR)
  Receive Date: 20231212
  Receipt Date: 20250404
  Transmission Date: 20250717
  Serious: Yes (Other)
  Sender: CELLTRION
  Company Number: BR-CELLTRION INC.-2023BR023675

PATIENT

DRUGS (3)
  1. INFLIXIMAB-DYYB [Suspect]
     Active Substance: INFLIXIMAB-DYYB
     Indication: Ankylosing spondylitis
     Route: 042
     Dates: start: 20220921
  2. INFLIXIMAB [Suspect]
     Active Substance: INFLIXIMAB
     Indication: Ankylosing spondylitis
     Dates: end: 202502
  3. PREDNISOLONE [Concomitant]
     Active Substance: PREDNISOLONE

REACTIONS (11)
  - Retinal artery occlusion [Recovering/Resolving]
  - Conjunctival haemorrhage [Recovering/Resolving]
  - Muscle atrophy [Recovering/Resolving]
  - Ankylosing spondylitis [Recovering/Resolving]
  - Neck pain [Recovering/Resolving]
  - Weight gain poor [Recovering/Resolving]
  - Blood cholesterol increased [Recovering/Resolving]
  - Hypertension [Recovering/Resolving]
  - Dry skin [Recovering/Resolving]
  - Therapeutic response shortened [Recovering/Resolving]
  - Therapy cessation [Unknown]

NARRATIVE: CASE EVENT DATE: 20230101
